FAERS Safety Report 5487813-2 (Version None)
Quarter: 2007Q4

REPORT INFORMATION
  Report Type: 
  Country: None (occurrence: None)
  Receive Date: 20071001
  Receipt Date: 20061024
  Transmission Date: 20080405
  Serious: Yes (Other)
  Sender: FDA-Public Use
  Company Number: TPA2006A01853

PATIENT
  Sex: Female
  Weight: 65.318 kg

DRUGS (10)
  1. ACTOS [Suspect]
     Indication: DIABETES MELLITUS
     Dosage: 30 MG, PER ORAL
     Route: 048
     Dates: start: 20060919, end: 20061002
  2. INSULIN [Concomitant]
  3. DIGOXIN [Concomitant]
  4. POTASSIUM CHLORIDE [Concomitant]
  5. LASIX [Concomitant]
  6. MICARDIS [Concomitant]
  7. IMDUR [Concomitant]
  8. NEURONTIN [Concomitant]
  9. VYTORIN [Concomitant]
  10. ACTONEL [Concomitant]

REACTIONS (2)
  - JAUNDICE [None]
  - LIVER TENDERNESS [None]
